FAERS Safety Report 9915725 (Version 1)
Quarter: 2014Q1

REPORT INFORMATION
  Report Type: Spontaneous
  Country: US (occurrence: None)
  Receive Date: 20140219
  Receipt Date: 20140219
  Transmission Date: 20141002
  Serious: No
  Sender: FDA-Public Use
  Company Number: None

PATIENT
  Sex: Male

DRUGS (2)
  1. MIDAZOLAM [Suspect]
     Indication: COLONOSCOPY
     Dates: start: 20140204
  2. MIDAZOLAM [Suspect]
     Indication: HAEMORRHOID OPERATION
     Dates: start: 20140204

REACTIONS (5)
  - Blood pressure increased [None]
  - Anxiety [None]
  - Lethargy [None]
  - Abnormal behaviour [None]
  - Tremor [None]
